FAERS Safety Report 11791193 (Version 1)
Quarter: 2015Q4

REPORT INFORMATION
  Report Type: Report from Study
  Country: ES (occurrence: ES)
  Receive Date: 20151201
  Receipt Date: 20151201
  Transmission Date: 20160305
  Serious: Yes (Other)
  Sender: FDA-Public Use
  Company Number: ES-BAXTER-2015BAX064273

PATIENT

DRUGS (3)
  1. GENOXAL GRAGEAS [Suspect]
     Active Substance: CYCLOPHOSPHAMIDE
     Indication: RENAL VASCULITIS
  2. GENOXAL GRAGEAS [Suspect]
     Active Substance: CYCLOPHOSPHAMIDE
     Indication: ANTI-NEUTROPHIL CYTOPLASMIC ANTIBODY POSITIVE VASCULITIS
     Route: 048
  3. PREDNISOLONE. [Suspect]
     Active Substance: PREDNISOLONE
     Indication: IMMUNOSUPPRESSANT DRUG THERAPY
     Route: 048

REACTIONS (1)
  - Neoplasm [Unknown]
